FAERS Safety Report 16334102 (Version 1)
Quarter: 2019Q2

REPORT INFORMATION
  Report Type: Spontaneous
  Country: US (occurrence: US)
  Receive Date: 20190520
  Receipt Date: 20190520
  Transmission Date: 20190711
  Serious: No
  Sender: FDA-Public Use
  Company Number: US-FERRINGPH-2018FE04440

PATIENT
  Age: 38 Year
  Sex: Female
  Weight: 79.37 kg

DRUGS (1)
  1. CERVIDIL [Suspect]
     Active Substance: DINOPROSTONE
     Indication: LABOUR INDUCTION
     Dosage: 10 MG, ONCE/SINGLE
     Route: 067
     Dates: start: 20180725, end: 20180725

REACTIONS (2)
  - Vulvovaginal pain [Recovered/Resolved]
  - Vulvovaginal swelling [Recovered/Resolved]

NARRATIVE: CASE EVENT DATE: 20180725
